FAERS Safety Report 9640021 (Version 1)
Quarter: 2013Q4

REPORT INFORMATION
  Report Type: Spontaneous
  Country: US (occurrence: None)
  Receive Date: 20131021
  Receipt Date: 20131021
  Transmission Date: 20140711
  Serious: Yes (Life-Threatening, Disabling, Other)
  Sender: FDA-Public Use
  Company Number: None

PATIENT
  Sex: Female

DRUGS (2)
  1. LITHIUM [Suspect]
     Indication: BIPOLAR I DISORDER
     Dosage: 300MG 3 PILLS 3 AT BEDTIME BY MOUTH?20 YRS AGO ?7-?-10?I DON^T KNOW BECAUSE IT HAS BEEN 4 YEARS BEING OFF THE MEDICATION (LITHIUM
     Route: 048
     Dates: end: 201007
  2. LITHIUM [Suspect]
     Dosage: 300MG 3 PILLS 3 AT BEDTIME BY MOUTH?20 YRS AGO ?7-?-10?I DON^T KNOW BECAUSE IT HAS BEEN 4 YEARS BEING OFF THE MEDICATION (LITHIUM
     Route: 048
     Dates: end: 201007

REACTIONS (3)
  - Renal impairment [None]
  - Kidney small [None]
  - Mental impairment [None]
